FAERS Safety Report 8191162 (Version 5)
Quarter: 2013Q1

REPORT INFORMATION
  Report Type: Spontaneous
  Country: BR (occurrence: None)
  Receive Date: 20111011
  Receipt Date: 20130214
  Transmission Date: 20140127
  Serious: Yes (Hospitalization, Other)
  Sender: FDA-Public Use
  Company Number: DSJ-2011-21233

PATIENT
  Age: 8 Decade
  Sex: Female

DRUGS (4)
  1. BENICAR HCT [Suspect]
     Dosage: 40/12.5 MG (1 IN 1 D), PER ORAL
     Route: 048
     Dates: start: 2009, end: 201108
  2. ALISKIREN/HYDROCHLOROTHIAZIDE (ALISKIREN AND HYDROCHLOROTHIAZIDE) [Concomitant]
  3. ACETYLSALICYLIC ACID/ ISOSORBIDE [Concomitant]
  4. MEDICINE FOR CARDIAC DISORDER [Concomitant]

REACTIONS (8)
  - VISUAL IMPAIRMENT [None]
  - DRUG INEFFECTIVE [None]
  - BLOOD PRESSURE SYSTOLIC INCREASED [None]
  - INSOMNIA [None]
  - OVERDOSE [None]
  - DRUG ADMINISTRATION ERROR [None]
  - ARRHYTHMIA [None]
  - HEADACHE [None]
